FAERS Safety Report 4667316-5 (Version None)
Quarter: 2005Q2

REPORT INFORMATION
  Report Type: 
  Country: None (occurrence: None)
  Receive Date: 20050520
  Receipt Date: 20040929
  Transmission Date: 20051028
  Serious: Yes (Other)
  Sender: FDA-Public Use
  Company Number: PHEH2004US10462

PATIENT
  Age: 71 Year
  Sex: Male

DRUGS (7)
  1. ZOMETA [Suspect]
     Indication: PROSTATE CANCER
     Dosage: MONTHLY
     Dates: start: 20020423
  2. COUMADIN [Concomitant]
  3. KETOCONAZOLE [Concomitant]
  4. DOXYCYCLINE [Concomitant]
  5. LYCOPENE [Concomitant]
  6. ZINC [Concomitant]
  7. LUPRON [Concomitant]
     Indication: PROSTATE CANCER
     Dosage: EVERY 4 MONTHS

REACTIONS (2)
  - DENTAL CARE [None]
  - OSTEONECROSIS [None]
